FAERS Safety Report 12223434 (Version 2)
Quarter: 2016Q2

REPORT INFORMATION
  Report Type: Spontaneous
  Country: CH (occurrence: CH)
  Receive Date: 20160330
  Receipt Date: 20160401
  Transmission Date: 20160815
  Serious: Yes (Life-Threatening, Hospitalization, Congenital Anomaly)
  Sender: FDA-Public Use
  Company Number: CH-ASTRAZENECA-2016SE31380

PATIENT
  Age: 0 Year
  Sex: Male
  Weight: 2.2 kg

DRUGS (5)
  1. METO ZEROK [Concomitant]
     Active Substance: METOPROLOL SUCCINATE
     Indication: HYPERTENSION
     Route: 064
     Dates: start: 2015
  2. ATACAND [Suspect]
     Active Substance: CANDESARTAN CILEXETIL
     Indication: HYPERTENSION
     Route: 064
     Dates: end: 2015
  3. METO ZEROK [Concomitant]
     Active Substance: METOPROLOL SUCCINATE
     Indication: HYPERTENSION
     Route: 064
     Dates: start: 2015
  4. QUETIAPINE. [Concomitant]
     Active Substance: QUETIAPINE
     Indication: BIPOLAR DISORDER
     Dosage: EVERY DAY
     Route: 064
  5. QUETIAPINE. [Concomitant]
     Active Substance: QUETIAPINE
     Indication: BIPOLAR DISORDER
     Dosage: EVERY DAY
     Route: 064

REACTIONS (7)
  - Neonatal anuria [Recovered/Resolved]
  - Nephrogenic anaemia [Unknown]
  - Apgar score low [Recovered/Resolved]
  - Oligohydramnios [Unknown]
  - Chronic kidney disease [Unknown]
  - Neonatal respiratory distress syndrome [Recovered/Resolved]
  - Congenital renal disorder [Unknown]

NARRATIVE: CASE EVENT DATE: 201510
